FAERS Safety Report 7912057-1 (Version None)
Quarter: 2011Q4

REPORT INFORMATION
  Report Type: 
  Country: None (occurrence: None)
  Receive Date: 20111114
  Receipt Date: 20111027
  Transmission Date: 20120403
  Serious: No
  Sender: FDA-Public Use
  Company Number: US-B.I. PHARMACEUTICALS,INC./RIDGEFIELD-2011-BP-24939BP

PATIENT
  Age: 90 Year
  Sex: Female

DRUGS (7)
  1. DIOVAN [Concomitant]
     Indication: HYPERTENSION
     Route: 048
  2. FISH OIL [Concomitant]
     Indication: RHEUMATOID ARTHRITIS
     Route: 048
  3. ACTIVA [Concomitant]
     Indication: CONSTIPATION
  4. ASPIRIN [Concomitant]
     Indication: PROPHYLAXIS
     Dosage: 325 MG
     Route: 048
  5. VITAMIN E [Concomitant]
     Indication: SUPPLEMENTATION THERAPY
     Route: 048
  6. PRADAXA [Suspect]
     Indication: ATRIAL FIBRILLATION
     Dosage: 300 MG
     Route: 048
     Dates: start: 20110901
  7. SYNTHROID [Concomitant]
     Indication: HYPOTHYROIDISM
     Route: 048

REACTIONS (8)
  - OEDEMA PERIPHERAL [None]
  - NAUSEA [None]
  - BACK PAIN [None]
  - DIZZINESS [None]
  - FLUID RETENTION [None]
  - LOCALISED OEDEMA [None]
  - ABDOMINAL DISTENSION [None]
  - DYSPHONIA [None]
